FAERS Safety Report 4827475-8 (Version None)
Quarter: 2005Q4

REPORT INFORMATION
  Report Type: 
  Country: None (occurrence: None)
  Receive Date: 20051110
  Receipt Date: 20051025
  Transmission Date: 20060501
  Serious: Yes (Death)
  Sender: FDA-Public Use
  Company Number: 219197

PATIENT
  Age: 72 Year
  Sex: Male

DRUGS (10)
  1. AVASTIN [Suspect]
     Indication: COLORECTAL CANCER
     Dosage: 430 MG, Q2W, INTRAVENOUS
     Route: 042
     Dates: start: 20051004
  2. IRINOTECAN HCL [Suspect]
     Indication: COLORECTAL CANCER
     Dosage: 335 MG, Q2W, INTRAVENOUS
     Route: 042
  3. FLUOROURACIL [Suspect]
     Indication: COLORECTAL CANCER
     Dosage: 744 MG, Q2W, INTRAVENOUS
     Route: 042
     Dates: start: 20051004
  4. LEUCOVORIN CALCIUM [Suspect]
     Indication: COLORECTAL CANCER
     Dosage: 744 MG, Q2W, INTRAVENOUS
     Route: 042
     Dates: start: 20051004
  5. ALTACE [Suspect]
     Dosage: 10 MG, QD,
     Dates: start: 20050805
  6. ATENOLOL [Suspect]
     Dosage: 50 MG, QD,
     Dates: start: 19850615
  7. NORVASC [Suspect]
     Dosage: 5 MG, QD,
     Dates: start: 20050927
  8. ATIVAN [Concomitant]
  9. MAALOX (MAGNESIUM HYDROXIDE, ALUMINUM HYDROXIDE) [Concomitant]
  10. MEDICATION (GENERIC COMPONENT (S)) [Concomitant]

REACTIONS (13)
  - BLOOD PRESSURE IMMEASURABLE [None]
  - CARDIAC ARREST [None]
  - CYANOSIS [None]
  - DEPRESSED LEVEL OF CONSCIOUSNESS [None]
  - DIZZINESS [None]
  - DYSPNOEA [None]
  - FALL [None]
  - GENERAL PHYSICAL HEALTH DETERIORATION [None]
  - HYPERTENSION [None]
  - NAUSEA [None]
  - PULSE ABSENT [None]
  - RESPIRATORY ARREST [None]
  - VOMITING [None]
